FAERS Safety Report 5830924-X (Version None)
Quarter: 2008Q3

REPORT INFORMATION
  Report Type: 
  Country: None (occurrence: None)
  Receive Date: 20080801
  Receipt Date: 20080204
  Transmission Date: 20090109
  Serious: Yes (Hospitalization)
  Sender: FDA-Public Use
  Company Number: US-BRISTOL-MYERS SQUIBB COMPANY-14064539

PATIENT
  Age: 87 Year
  Sex: Female
  Weight: 41 kg

DRUGS (9)
  1. COUMADIN [Suspect]
     Dates: start: 20071026
  2. GLYBURIDE [Concomitant]
     Route: 048
  3. INSULIN [Concomitant]
  4. METFORMIN HCL [Concomitant]
     Route: 048
     Dates: start: 20070101
  5. AMLODIPINE [Concomitant]
     Route: 048
  6. LEVOTHYROXINE SODIUM [Concomitant]
     Route: 048
  7. LIPITOR [Concomitant]
     Route: 048
     Dates: start: 20070701
  8. PREDNISOLONE [Concomitant]
     Route: 047
     Dates: start: 19930101
  9. SEROQUEL [Concomitant]
     Route: 048
     Dates: start: 20071019

REACTIONS (3)
  - CONTUSION [None]
  - HAEMORRHAGE [None]
  - OEDEMA PERIPHERAL [None]
